FAERS Safety Report 6733321-8 (Version None)
Quarter: 2010Q2

REPORT INFORMATION
  Report Type: 
  Country: None (occurrence: None)
  Receive Date: 20100520
  Receipt Date: 20100510
  Transmission Date: 20101027
  Serious: Yes (Other)
  Sender: FDA-Public Use
  Company Number: US-PFIZER INC-2010059387

PATIENT
  Sex: Male
  Weight: 86.168 kg

DRUGS (5)
  1. SERTRALINE HCL [Suspect]
     Indication: DEPRESSION
     Dosage: 50 MG, 1X/DAY
     Route: 048
     Dates: start: 20100501, end: 20100507
  2. SERTRALINE HCL [Suspect]
     Indication: ANXIETY
  3. VICODIN [Concomitant]
     Dosage: UNK
  4. SPIRIVA [Concomitant]
     Dosage: UNK
  5. AMBIEN [Concomitant]
     Dosage: UNK

REACTIONS (8)
  - AGITATION [None]
  - ANXIETY [None]
  - COELIAC DISEASE [None]
  - DIARRHOEA [None]
  - FATIGUE [None]
  - HOT FLUSH [None]
  - NIGHT SWEATS [None]
  - TINNITUS [None]
